FAERS Safety Report 20874269 (Version 2)
Quarter: 2023Q4

REPORT INFORMATION
  Report Type: Spontaneous
  Country: CA (occurrence: CA)
  Receive Date: 20220525
  Receipt Date: 20231226
  Transmission Date: 20240110
  Serious: Yes (Other)
  Sender: FDA-Public Use
  Company Number: CA-NAPPMUNDI-GBR-2022-0098124

PATIENT
  Age: 40 Year
  Sex: Male

DRUGS (6)
  1. OXYCODONE HYDROCHLORIDE [Suspect]
     Active Substance: OXYCODONE HYDROCHLORIDE
     Indication: Pain
     Dosage: 5 MILLIGRAM
     Route: 065
  2. COSENTYX [Suspect]
     Active Substance: SECUKINUMAB
     Indication: Psoriasis
     Dosage: 300 MILLIGRAM MONTHLY (REPORTED 6 TIMES)
     Route: 058
  3. COSENTYX [Suspect]
     Active Substance: SECUKINUMAB
     Dosage: 300 MILLIGRAM (REPORTED 7 TIMES)
     Route: 058
  4. COSENTYX [Suspect]
     Active Substance: SECUKINUMAB
     Dosage: 300 MILLIGRAM, 1 EVERY 1 WEEKS
     Route: 058
  5. COSENTYX [Suspect]
     Active Substance: SECUKINUMAB
     Dosage: 300 MILLIGRAM
     Route: 058
  6. HYALURONATE SODIUM [Suspect]
     Active Substance: HYALURONATE SODIUM
     Indication: Product used for unknown indication
     Dosage: UNK
     Route: 065

REACTIONS (17)
  - Taste disorder [Recovering/Resolving]
  - Arthralgia [Recovering/Resolving]
  - Disease recurrence [Recovering/Resolving]
  - Drug ineffective [Recovering/Resolving]
  - Finger deformity [Recovering/Resolving]
  - Gait disturbance [Recovering/Resolving]
  - General physical health deterioration [Recovering/Resolving]
  - Herpes zoster [Recovering/Resolving]
  - Pain of skin [Recovering/Resolving]
  - Pruritus [Recovering/Resolving]
  - Psoriasis [Recovering/Resolving]
  - Rash erythematous [Recovering/Resolving]
  - Scratch [Recovering/Resolving]
  - Self-consciousness [Recovering/Resolving]
  - Skin discolouration [Recovering/Resolving]
  - Therapeutic product effect incomplete [Recovering/Resolving]
  - Viral infection [Recovering/Resolving]
